FAERS Safety Report 9419423 (Version 1)
Quarter: 2013Q3

REPORT INFORMATION
  Report Type: Spontaneous
  Country: AR (occurrence: AR)
  Receive Date: 20130725
  Receipt Date: 20130725
  Transmission Date: 20140515
  Serious: Yes (Hospitalization, Other)
  Sender: FDA-Public Use
  Company Number: AR-PFIZER INC-2013216946

PATIENT
  Age: 11 Month
  Sex: Male

DRUGS (1)
  1. RAPAMUNE [Suspect]
     Indication: LIVER TRANSPLANT
     Dosage: 0.5 MG, 1X/DAY
     Dates: start: 20130205

REACTIONS (6)
  - Device related infection [Recovered/Resolved]
  - Liver transplant rejection [Recovered/Resolved]
  - Blood calcium increased [Recovered/Resolved]
  - Blood sodium increased [Recovered/Resolved]
  - Vomiting [Recovered/Resolved]
  - Off label use [Unknown]
